FAERS Safety Report 21766243 (Version 1)
Quarter: 2022Q4

REPORT INFORMATION
  Report Type: Report from Study
  Country: None (occurrence: JP)
  Receive Date: 20221222
  Receipt Date: 20221222
  Transmission Date: 20230112
  Serious: Yes (Other)
  Sender: FDA-Public Use
  Company Number: JP-Acacia Pharma Limited-2136084

PATIENT
  Age: 76 Year
  Sex: Female
  Weight: 49.1 kg

DRUGS (4)
  1. BYFAVO [Suspect]
     Active Substance: REMIMAZOLAM BESYLATE
     Indication: General anaesthesia
     Route: 042
     Dates: start: 20221128, end: 20221128
  2. REMIFENTANIL HYDROCHLORIDE [Concomitant]
     Active Substance: REMIFENTANIL HYDROCHLORIDE
     Route: 042
     Dates: start: 20221128
  3. FENTANYL CITRATE [Concomitant]
     Active Substance: FENTANYL CITRATE
     Dates: start: 20221128
  4. LEVOBUPIVACAINE HYDROCHLORIDE [Concomitant]
     Active Substance: LEVOBUPIVACAINE HYDROCHLORIDE
     Dates: start: 20221128

REACTIONS (1)
  - Electrocardiogram QT prolonged [Recovered/Resolved]

NARRATIVE: CASE EVENT DATE: 20221128
